FAERS Safety Report 7019674-4 (Version None)
Quarter: 2010Q3

REPORT INFORMATION
  Report Type: 
  Country: None (occurrence: None)
  Receive Date: 20100928
  Receipt Date: 20100928
  Transmission Date: 20110219
  Serious: Yes (Hospitalization)
  Sender: FDA-Public Use
  Company Number: None

PATIENT
  Age: 81 Year
  Sex: Male
  Weight: 80 kg

DRUGS (15)
  1. WARFARIN SODIUM [Suspect]
     Indication: DEEP VEIN THROMBOSIS
     Dosage: 5 MG DAILY PO
     Route: 048
     Dates: start: 20100529, end: 20100531
  2. WARFARIN SODIUM [Suspect]
     Indication: PULMONARY EMBOLISM
     Dosage: 5 MG DAILY PO
     Route: 048
     Dates: start: 20100529, end: 20100531
  3. ENOXAPARIN SODIUM [Suspect]
     Indication: DEEP VEIN THROMBOSIS
     Dosage: 80 MG BID SQ
     Route: 058
     Dates: start: 20100529, end: 20100531
  4. ENOXAPARIN SODIUM [Suspect]
     Indication: PULMONARY EMBOLISM
     Dosage: 80 MG BID SQ
     Route: 058
     Dates: start: 20100529, end: 20100531
  5. ATENOLOL [Concomitant]
  6. PREDNISONE [Concomitant]
  7. ZETIA [Concomitant]
  8. CARDURA [Concomitant]
  9. OXYCODONE [Concomitant]
  10. COSOPT [Concomitant]
  11. PROVENTIL [Concomitant]
  12. COMPAZINE [Concomitant]
  13. ATIVAN [Concomitant]
  14. SPIRIVA [Concomitant]
  15. ALBUTEROL [Concomitant]

REACTIONS (2)
  - MELAENA [None]
  - UPPER GASTROINTESTINAL HAEMORRHAGE [None]
